FAERS Safety Report 9285568 (Version 2)
Quarter: 2013Q2

REPORT INFORMATION
  Report Type: Spontaneous
  Country: JP (occurrence: JP)
  Receive Date: 20130513
  Receipt Date: 20130612
  Transmission Date: 20140414
  Serious: Yes (Hospitalization)
  Sender: FDA-Public Use
  Company Number: PHHY2013JP046859

PATIENT
  Sex: 0

DRUGS (2)
  1. COMTAN [Suspect]
     Indication: PARKINSON^S DISEASE
     Dosage: 1 DF, SEVEN TIMES
     Route: 048
  2. NEODOPASTON [Concomitant]

REACTIONS (2)
  - Thoracic vertebral fracture [Recovered/Resolved]
  - Back pain [Unknown]
